FAERS Safety Report 13964265 (Version 1)
Quarter: 2017Q3

REPORT INFORMATION
  Report Type: Spontaneous
  Country: US (occurrence: US)
  Receive Date: 20170913
  Receipt Date: 20170913
  Transmission Date: 20171128
  Serious: Yes (Other)
  Sender: FDA-Public Use
  Company Number: US-MYLANLABS-2016M1034438

PATIENT
  Age: 66 Year
  Sex: Female

DRUGS (1)
  1. ISOSULFAN BLUE INJECTION [Suspect]
     Active Substance: ISOSULFAN BLUE
     Indication: LYMPHATIC MAPPING
     Dosage: 0.5 ML, ONCE
     Route: 058
     Dates: start: 20160811, end: 20160811

REACTIONS (1)
  - Angioedema [Recovered/Resolved]

NARRATIVE: CASE EVENT DATE: 20160811
